FAERS Safety Report 12273026 (Version 1)
Quarter: 2016Q2

REPORT INFORMATION
  Report Type: Spontaneous
  Country: US (occurrence: US)
  Receive Date: 20160415
  Receipt Date: 20160415
  Transmission Date: 20160815
  Serious: Yes (Other)
  Sender: FDA-Public Use
  Company Number: US-ROCHE-1024952

PATIENT
  Sex: Male

DRUGS (4)
  1. PEGASYS [Suspect]
     Active Substance: PEGINTERFERON ALFA-2A
     Indication: CHRONIC HEPATITIS C
     Route: 058
     Dates: start: 20111216
  2. COPEGUS [Suspect]
     Active Substance: RIBAVIRIN
     Indication: CHRONIC HEPATITIS C
     Route: 048
     Dates: start: 20111216
  3. COPEGUS [Suspect]
     Active Substance: RIBAVIRIN
     Route: 065
  4. TELAPREVIR [Suspect]
     Active Substance: TELAPREVIR
     Indication: CHRONIC HEPATITIS C
     Route: 065
     Dates: start: 20111216

REACTIONS (9)
  - Platelet count decreased [Unknown]
  - Back pain [Unknown]
  - Vision blurred [Unknown]
  - Vomiting [Unknown]
  - White blood cell count decreased [Unknown]
  - Visual impairment [Unknown]
  - Eye pain [Unknown]
  - Nausea [Unknown]
  - Dehydration [Unknown]
